FAERS Safety Report 11152590 (Version 1)
Quarter: 2015Q2

REPORT INFORMATION
  Report Type: Spontaneous
  Country: BR (occurrence: BR)
  Receive Date: 20150601
  Receipt Date: 20150601
  Transmission Date: 20150821
  Serious: Yes (Other)
  Sender: FDA-Public Use
  Company Number: BR-PFIZER INC-2015174626

PATIENT
  Age: 70 Year
  Sex: Female

DRUGS (1)
  1. CITALOR [Suspect]
     Active Substance: ATORVASTATIN
     Route: 048

REACTIONS (1)
  - Arthropathy [Unknown]
